FAERS Safety Report 5489691-4 (Version None)
Quarter: 2007Q4

REPORT INFORMATION
  Report Type: 
  Country: None (occurrence: None)
  Receive Date: 20071018
  Receipt Date: 20071011
  Transmission Date: 20080405
  Serious: Yes (Death, Other)
  Sender: FDA-Public Use
  Company Number: PHBS2007IT17102

PATIENT
  Age: 44 Year
  Sex: Male

DRUGS (2)
  1. CYCLOSPORINE [Suspect]
     Indication: LIVER TRANSPLANT
     Route: 065
  2. STEROIDS NOS [Concomitant]
     Indication: LIVER TRANSPLANT

REACTIONS (2)
  - ASPERGILLOSIS [None]
  - KAPOSI'S SARCOMA [None]
